FAERS Safety Report 17519599 (Version 1)
Quarter: 2020Q1

REPORT INFORMATION
  Report Type: Spontaneous
  Country: KW (occurrence: KW)
  Receive Date: 20200309
  Receipt Date: 20200309
  Transmission Date: 20200409
  Serious: Yes (Other)
  Sender: FDA-Public Use
  Company Number: KW-PURDUE-CAN-2020-0010661

PATIENT
  Age: 10 Year
  Sex: Male
  Weight: 35 kg

DRUGS (3)
  1. NON-PMN METHYLPHENIDATE HYDROCHLORIDE [Suspect]
     Active Substance: METHYLPHENIDATE HYDROCHLORIDE
     Dosage: 15 MG, DAILY (ON 3 DEVIDED DOSES FOR A WEEK)
     Route: 065
  2. NON-PMN METHYLPHENIDATE HYDROCHLORIDE [Suspect]
     Active Substance: METHYLPHENIDATE HYDROCHLORIDE
     Indication: ATTENTION DEFICIT/HYPERACTIVITY DISORDER
     Dosage: 18 MG, UNK
     Route: 048
  3. NON-PMN METHYLPHENIDATE HYDROCHLORIDE [Suspect]
     Active Substance: METHYLPHENIDATE HYDROCHLORIDE
     Dosage: 30 MG, DAILY (DEVIDED FOR WEEK 2)
     Route: 065

REACTIONS (3)
  - Myoclonus [Unknown]
  - Enuresis [Unknown]
  - Onychophagia [Unknown]
